FAERS Safety Report 8028384-6 (Version None)
Quarter: 2012Q1

REPORT INFORMATION
  Report Type: 
  Country: None (occurrence: None)
  Receive Date: 20120106
  Receipt Date: 20120105
  Transmission Date: 20120608
  Serious: Yes (Other)
  Sender: FDA-Public Use
  Company Number: SG-BAYER-2012-001442

PATIENT
  Sex: Male

DRUGS (2)
  1. CIPROFLOXACIN HCL [Suspect]
  2. AMOXIL [Suspect]

REACTIONS (3)
  - DERMATITIS BULLOUS [None]
  - RASH [None]
  - SKIN EXFOLIATION [None]
